FAERS Safety Report 9032495 (Version 1)
Quarter: 2013Q1

REPORT INFORMATION
  Report Type: Spontaneous
  Country: US (occurrence: US)
  Receive Date: 20130125
  Receipt Date: 20130125
  Transmission Date: 20140127
  Serious: Yes (Hospitalization)
  Sender: FDA-Public Use
  Company Number: US-JNJFOC-20130111135

PATIENT
  Sex: Female

DRUGS (1)
  1. TOPAMAX [Suspect]
     Indication: MIGRAINE
     Route: 048

REACTIONS (8)
  - Wrist fracture [Recovered/Resolved]
  - Upper limb fracture [Recovered/Resolved]
  - Spinal column stenosis [Not Recovered/Not Resolved]
  - Migraine [Not Recovered/Not Resolved]
  - Rotator cuff syndrome [Not Recovered/Not Resolved]
  - Arthropathy [Not Recovered/Not Resolved]
  - Insomnia [Not Recovered/Not Resolved]
  - Irritability [Not Recovered/Not Resolved]
